FAERS Safety Report 10305632 (Version 3)
Quarter: 2014Q3

REPORT INFORMATION
  Report Type: Report from Study
  Country: US (occurrence: US)
  Receive Date: 20140715
  Receipt Date: 20140905
  Transmission Date: 20150326
  Serious: Yes (Other)
  Sender: FDA-Public Use
  Company Number: US-BIOGENIDEC-2014BI064145

PATIENT
  Age: 57 Year
  Sex: Female
  Weight: 60 kg

DRUGS (19)
  1. TECFIDERA [Suspect]
     Active Substance: DIMETHYL FUMARATE
     Indication: MULTIPLE SCLEROSIS
     Route: 048
  2. TECFIDERA [Suspect]
     Active Substance: DIMETHYL FUMARATE
     Indication: MULTIPLE SCLEROSIS
     Route: 048
     Dates: start: 20140501
  3. SENOKOT [Concomitant]
     Active Substance: SENNOSIDES
  4. OMEPRAZOLE. [Concomitant]
     Active Substance: OMEPRAZOLE
  5. RESTASIS [Concomitant]
     Active Substance: CYCLOSPORINE
  6. TECFIDERA [Suspect]
     Active Substance: DIMETHYL FUMARATE
     Indication: MULTIPLE SCLEROSIS
     Route: 048
     Dates: start: 20140523
  7. AMPYRA [Concomitant]
     Active Substance: DALFAMPRIDINE
  8. FLORASTOR [Concomitant]
     Active Substance: SACCHAROMYCES CEREVISIAE
  9. TRAZODONE [Concomitant]
     Active Substance: TRAZODONE HYDROCHLORIDE
     Indication: SLEEP DISORDER
  10. MECLIZINE [Concomitant]
     Active Substance: MECLIZINE\MECLIZINE HYDROCHLORIDE
  11. MUCINEX [Concomitant]
     Active Substance: GUAIFENESIN
  12. CALCIUM [Concomitant]
     Active Substance: CALCIUM
  13. DIAZEPAM. [Concomitant]
     Active Substance: DIAZEPAM
  14. TYLENOL [Concomitant]
     Active Substance: ACETAMINOPHEN
  15. TRAVATAN [Concomitant]
     Active Substance: TRAVOPROST
  16. VITAMIN D [Concomitant]
     Active Substance: CHOLECALCIFEROL
  17. DULOXETINE [Concomitant]
     Active Substance: DULOXETINE
  18. LEVOTHYROXINE [Concomitant]
     Active Substance: LEVOTHYROXINE
  19. DILAUDID [Concomitant]
     Active Substance: HYDROMORPHONE HYDROCHLORIDE

REACTIONS (9)
  - Tension [Unknown]
  - Pyrexia [Unknown]
  - General symptom [Unknown]
  - Prescribed underdose [Unknown]
  - Heart rate increased [Unknown]
  - Hyperkinesia [Unknown]
  - Speech disorder [Unknown]
  - Goitre [Unknown]
  - Terminal insomnia [Unknown]

NARRATIVE: CASE EVENT DATE: 20140619
